FAERS Safety Report 9659804 (Version 1)
Quarter: 2013Q4

REPORT INFORMATION
  Report Type: Spontaneous
  Country: US (occurrence: US)
  Receive Date: 20131031
  Receipt Date: 20131031
  Transmission Date: 20140711
  Serious: Yes (Other)
  Sender: FDA-Public Use
  Company Number: US-SA-2013SA110672

PATIENT
  Sex: Male
  Weight: 70.3 kg

DRUGS (11)
  1. PLAVIX [Suspect]
     Route: 065
  2. CLOPIDOGREL BISULFATE [Suspect]
     Route: 065
  3. ELIQUIS [Suspect]
     Route: 065
  4. LEVOTHYROXINE [Concomitant]
  5. FERROUS SULFATE [Concomitant]
  6. VITAMIN D [Concomitant]
  7. ALL OTHER THERAPEUTIC PRODUCTS [Concomitant]
  8. SUCRALFATE [Concomitant]
  9. ATORVASTATIN [Concomitant]
  10. LOSARTAN [Concomitant]
  11. SOTALOL [Concomitant]

REACTIONS (3)
  - Cardiac fibrillation [Unknown]
  - Gastric ulcer [Recovered/Resolved]
  - Oedema peripheral [Unknown]
